FAERS Safety Report 4666399-6 (Version None)
Quarter: 2005Q2

REPORT INFORMATION
  Report Type: 
  Country: None (occurrence: None)
  Receive Date: 20050519
  Receipt Date: 20050509
  Transmission Date: 20051028
  Serious: Yes (Hospitalization, Other)
  Sender: FDA-Public Use
  Company Number: 2005PK00815

PATIENT
  Age: 886 Month
  Sex: Female
  Weight: 75 kg

DRUGS (2)
  1. NOLVADEX [Suspect]
     Indication: BREAST CANCER FEMALE
     Route: 048
     Dates: start: 20030418
  2. INHIBACE [Concomitant]
     Indication: HYPERTENSION

REACTIONS (3)
  - ADENOMYOSIS [None]
  - SMEAR CERVIX ABNORMAL [None]
  - UTERINE POLYP [None]
